FAERS Safety Report 10427132 (Version 2)
Quarter: 2017Q1

REPORT INFORMATION
  Report Type: Report from Study
  Country: BR (occurrence: BR)
  Receive Date: 20140903
  Receipt Date: 20170117
  Transmission Date: 20170428
  Serious: Yes (Hospitalization)
  Sender: FDA-Public Use
  Company Number: BR-ALEXION PHARMACEUTICALS INC-A201403231

PATIENT
  Age: 24 Year
  Sex: Male

DRUGS (5)
  1. PREDNISONA [Concomitant]
     Active Substance: PREDNISONE
     Indication: EXTRAVASCULAR HAEMOLYSIS
     Dosage: 40 MG, UNK
     Route: 048
     Dates: start: 20140115, end: 20140310
  2. CICLOFOSFAMIDA [Concomitant]
     Active Substance: CYCLOPHOSPHAMIDE
     Indication: IMMUNOSUPPRESSION
     Dosage: 15 MG/KG, Q10D
     Route: 042
     Dates: start: 20140312, end: 20140412
  3. SOLIRIS [Suspect]
     Active Substance: ECULIZUMAB
     Indication: PAROXYSMAL NOCTURNAL HAEMOGLOBINURIA
     Dosage: 600 MG, QW
     Route: 042
     Dates: start: 20100503
  4. SOLIRIS [Suspect]
     Active Substance: ECULIZUMAB
     Dosage: 900 MG, Q2W
     Route: 042
     Dates: start: 20100531
  5. SOLIRIS [Suspect]
     Active Substance: ECULIZUMAB
     Dosage: 1200 MG, Q11D
     Route: 042
     Dates: start: 20130621

REACTIONS (4)
  - Decreased immune responsiveness [Unknown]
  - Viral parotitis [Not Recovered/Not Resolved]
  - Incorrect dose administered [Not Recovered/Not Resolved]
  - Inappropriate schedule of drug administration [Not Recovered/Not Resolved]

NARRATIVE: CASE EVENT DATE: 20130621
